FAERS Safety Report 12956957 (Version 4)
Quarter: 2018Q3

REPORT INFORMATION
  Report Type: Report from Study
  Country: JP (occurrence: JP)
  Receive Date: 20161118
  Receipt Date: 20180727
  Transmission Date: 20181010
  Serious: Yes (Death, Other)
  Sender: FDA-Public Use
  Company Number: JP-GILEAD-2016-0243664

PATIENT
  Age: 88 Year
  Sex: Female
  Weight: 44.5 kg

DRUGS (10)
  1. FELTASE [Concomitant]
     Dosage: 3 DF, UNK
  2. HALCION [Concomitant]
     Active Substance: TRIAZOLAM
     Dosage: 0.25 MG, UNK
  3. SOFOSBUVIR [Suspect]
     Active Substance: SOFOSBUVIR
     Indication: HEPATITIS C
     Dosage: 1 DF, QD
     Route: 048
     Dates: start: 20161012
  4. URSO [Concomitant]
     Active Substance: URSODIOL
     Dosage: 150 MG, UNK
  5. ISALON [Concomitant]
     Active Substance: UNSPECIFIED INGREDIENT
     Dosage: 300 MG, UNK
  6. REBETOL [Concomitant]
     Active Substance: RIBAVIRIN
     Dosage: 200 MG, UNK
     Route: 048
     Dates: start: 20161012
  7. AVAPRO [Concomitant]
     Active Substance: IRBESARTAN
     Dosage: 100 MG, UNK
  8. FRANDOL [Concomitant]
     Active Substance: ISOSORBIDE DINITRATE
     Dosage: UNK
  9. METHAPHYLLIN [Concomitant]
     Dosage: 2 G, UNK
  10. ULCERLMIN [Concomitant]
     Active Substance: SUCRALFATE
     Dosage: UNK

REACTIONS (4)
  - Hepatitis C [Unknown]
  - Arrhythmia [Fatal]
  - Heat stroke [Unknown]
  - Drug ineffective [Unknown]

NARRATIVE: CASE EVENT DATE: 20161115
